FAERS Safety Report 13660418 (Version 1)
Quarter: 2017Q2

REPORT INFORMATION
  Report Type: Spontaneous
  Country: US (occurrence: US)
  Receive Date: 20170615
  Receipt Date: 20170615
  Transmission Date: 20170830
  Serious: Yes (Hospitalization)
  Sender: FDA-Public Use
  Company Number: None

PATIENT
  Age: 48 Year
  Sex: Female
  Weight: 81 kg

DRUGS (1)
  1. OPTIRAY [Suspect]
     Active Substance: IOVERSOL
     Route: 042
     Dates: start: 20170502, end: 20170502

REACTIONS (2)
  - Hypoaesthesia [None]
  - Eye movement disorder [None]

NARRATIVE: CASE EVENT DATE: 20170502
